FAERS Safety Report 10496280 (Version 3)
Quarter: 2017Q3

REPORT INFORMATION
  Report Type: Spontaneous
  Country: US (occurrence: US)
  Receive Date: 20141003
  Receipt Date: 20170831
  Transmission Date: 20171127
  Serious: Yes (Other)
  Sender: FDA-Public Use
  Company Number: US-009507513-1410USA000178

PATIENT

DRUGS (6)
  1. CAPECITABINE. [Suspect]
     Active Substance: CAPECITABINE
     Indication: CHEMOTHERAPY
  2. TEMODAR [Suspect]
     Active Substance: TEMOZOLOMIDE
     Indication: NEUROENDOCRINE CARCINOMA METASTATIC
     Dosage: 150-200 MG/M2 IN 2 DOSES ON DAYS 10-14 WITH 14 DAYS BETWEEN CYCLES, CYCLICAL (MONTHLY)
     Route: 048
  3. YTTRIUM-90 [Suspect]
     Active Substance: YTTRIUM Y-90
     Indication: RADIOEMBOLISATION
  4. TEMODAR [Suspect]
     Active Substance: TEMOZOLOMIDE
     Indication: CHEMOTHERAPY
  5. YTTRIUM-90 [Suspect]
     Active Substance: YTTRIUM Y-90
     Indication: NEUROENDOCRINE CARCINOMA METASTATIC
     Dosage: UNK, DURING THE SECOND CYCLE TO ONE LOBE ON DAY 7
  6. CAPECITABINE. [Suspect]
     Active Substance: CAPECITABINE
     Indication: NEUROENDOCRINE CARCINOMA METASTATIC
     Dosage: 600 MG/M2, BID, CYCLICAL (MONTHLY)
     Route: 048

REACTIONS (2)
  - Off label use [Unknown]
  - Thrombocytopenia [Unknown]
